FAERS Safety Report 6835609-9 (Version None)
Quarter: 2010Q3

REPORT INFORMATION
  Report Type: 
  Country: None (occurrence: None)
  Receive Date: 20100713
  Receipt Date: 20100712
  Transmission Date: 20110219
  Serious: Yes (Hospitalization)
  Sender: FDA-Public Use
  Company Number: IT-SANOFI-AVENTIS-2010SA032420

PATIENT
  Age: 70 Year
  Sex: Male

DRUGS (2)
  1. ARAVA [Suspect]
     Route: 048
     Dates: start: 20050420, end: 20100404
  2. FOSAMAX [Suspect]
     Route: 048
     Dates: start: 20050420, end: 20090304

REACTIONS (1)
  - OSTEONECROSIS OF JAW [None]
